FAERS Safety Report 22773969 (Version 2)
Quarter: 2024Q2

REPORT INFORMATION
  Report Type: Spontaneous
  Country: JP (occurrence: JP)
  Receive Date: 20230801
  Receipt Date: 20240612
  Transmission Date: 20240716
  Serious: Yes (Hospitalization, Other)
  Sender: FDA-Public Use
  Company Number: JP-OTSUKA-2023_019183

PATIENT
  Age: 66 Year
  Sex: Male
  Weight: 76 kg

DRUGS (17)
  1. REXULTI [Suspect]
     Active Substance: BREXPIPRAZOLE
     Indication: Schizophrenia
     Dosage: 1 MG/TIME, PER DAY
     Route: 048
     Dates: start: 20230518, end: 20230524
  2. REXULTI [Suspect]
     Active Substance: BREXPIPRAZOLE
     Dosage: 1 MG/TIME, PER DAY
     Route: 048
     Dates: start: 20230516, end: 20230517
  3. AMLODIPINE BESYLATE [Suspect]
     Active Substance: AMLODIPINE BESYLATE
     Indication: Hypertension
     Dosage: 2.5 MG/TIME, PER DAY
     Route: 048
  4. AMLODIPINE BESYLATE [Suspect]
     Active Substance: AMLODIPINE BESYLATE
     Indication: Product used for unknown indication
     Dosage: 32.5 MG/TIME, OVERDOSED (14 TABLETS), ONCE
     Route: 048
     Dates: start: 20230608, end: 20230608
  5. BIO-THREE [Suspect]
     Active Substance: HERBALS
     Indication: Dysbiosis
     Dosage: 1 TABLET/TIME, THREE TIMES PER DAY
     Route: 048
  6. BIO-THREE [Suspect]
     Active Substance: HERBALS
     Indication: Product used for unknown indication
     Dosage: OVERDOSED (58 TABLETS/TIME), ONCE
     Route: 048
     Dates: start: 20230608, end: 20230608
  7. BLONANSERIN [Suspect]
     Active Substance: BLONANSERIN
     Indication: Schizophrenia
     Dosage: 224 MG/TIME, ONCE
     Route: 048
     Dates: start: 20230608, end: 20230608
  8. BLONANSERIN [Suspect]
     Active Substance: BLONANSERIN
     Indication: Product used for unknown indication
     Dosage: 8 MG/TIME, PER DAY
     Route: 048
     Dates: end: 20230515
  9. DEXAN VG [Concomitant]
     Indication: Rash
     Dosage: 1 APPLICATION/TIME, AS NEEDED
     Route: 003
     Dates: start: 20230517
  10. SUVOREXANT [Concomitant]
     Active Substance: SUVOREXANT
     Indication: Insomnia
     Dosage: 10 MG/TIME, AS NEEDED
     Route: 048
     Dates: end: 20230523
  11. SUVOREXANT [Concomitant]
     Active Substance: SUVOREXANT
     Indication: Product used for unknown indication
     Dosage: 10 MG/TIME, AS NEEDED
     Route: 048
     Dates: start: 20230525
  12. SUVOREXANT [Concomitant]
     Active Substance: SUVOREXANT
     Dosage: 15 MG/TIME, ONCE
     Route: 048
     Dates: start: 20230612, end: 20230612
  13. RISPERIDONE [Concomitant]
     Active Substance: RISPERIDONE
     Indication: Product used for unknown indication
     Dosage: 1MG/ML/TIME, AS NEEDED
     Route: 048
     Dates: start: 20230613
  14. ZOTEPINE [Concomitant]
     Active Substance: ZOTEPINE
     Indication: Product used for unknown indication
     Dosage: 25MG/TIME, ONCE
     Route: 048
     Dates: start: 20230612, end: 20230612
  15. LEVOMEPROMAZINE MALEATE [Concomitant]
     Active Substance: LEVOMEPROMAZINE MALEATE
     Indication: Product used for unknown indication
     Dosage: 25MG/TIME, ONCE
     Route: 048
     Dates: start: 20230612, end: 20230612
  16. BROTIZOLAM [Concomitant]
     Active Substance: BROTIZOLAM
     Indication: Product used for unknown indication
     Dosage: 0.75MG/TIME, ONCE
     Route: 048
     Dates: start: 20230612, end: 20230612
  17. TRAZODONE HYDROCHLORIDE [Concomitant]
     Active Substance: TRAZODONE HYDROCHLORIDE
     Indication: Insomnia
     Dosage: 150 MG/TIME, PER DAY
     Route: 048
     Dates: end: 20230521

REACTIONS (2)
  - Schizophrenia [Recovered/Resolved]
  - Overdose [Recovered/Resolved]

NARRATIVE: CASE EVENT DATE: 20230608
